FAERS Safety Report 7061620-1 (Version None)
Quarter: 2010Q4

REPORT INFORMATION
  Report Type: 
  Country: None (occurrence: None)
  Receive Date: 20101026
  Receipt Date: 20100803
  Transmission Date: 20110411
  Serious: No
  Sender: FDA-Public Use
  Company Number: US-ABBOTT-10P-163-0662184-00

PATIENT

DRUGS (3)
  1. LUPRON DEPOT [Suspect]
     Indication: UTERINE LEIOMYOMA
     Route: 030
     Dates: start: 20100601
  2. LUPRON DEPOT [Suspect]
     Indication: ANAEMIA
  3. IRON [Concomitant]
     Indication: ANAEMIA
     Dates: start: 20100801

REACTIONS (3)
  - DRUG INEFFECTIVE [None]
  - HAEMORRHAGE [None]
  - MUSCLE SPASMS [None]
